FAERS Safety Report 5958995-0 (Version None)
Quarter: 2008Q4

REPORT INFORMATION
  Report Type: 
  Country: None (occurrence: None)
  Receive Date: 20081120
  Receipt Date: 20081111
  Transmission Date: 20090506
  Serious: Yes (Hospitalization)
  Sender: FDA-Public Use
  Company Number: FR-RANBAXY-2008RR-19298

PATIENT
  Sex: Male

DRUGS (6)
  1. ZIDOVUDINE [Suspect]
     Indication: HIV TEST POSITIVE
     Route: 064
  2. ZIDOVUDINE [Suspect]
  3. LAMIVUDINE [Suspect]
     Indication: HIV TEST POSITIVE
     Route: 064
  4. DIDANOSINE [Suspect]
     Indication: HIV INFECTION
     Route: 064
  5. NEVIRAPINE [Suspect]
     Indication: HIV TEST POSITIVE
  6. ZIDOVUDINE [Suspect]
     Route: 042

REACTIONS (1)
  - PINEALOBLASTOMA [None]
